FAERS Safety Report 4723695-1 (Version None)
Quarter: 2005Q3

REPORT INFORMATION
  Report Type: 
  Country: None (occurrence: None)
  Receive Date: 20050720
  Receipt Date: 20050720
  Transmission Date: 20060218
  Serious: No
  Sender: FDA-Public Use
  Company Number: None

PATIENT
  Age: 74 Year
  Sex: Male

DRUGS (1)
  1. MORPHINE [Suspect]
     Dosage: 1 MG IV Q 10 MINUTES MAX DOSE 24 MG /HR
     Route: 042

REACTIONS (3)
  - HYPOXIA [None]
  - OVERDOSE [None]
  - POST PROCEDURAL COMPLICATION [None]
